FAERS Safety Report 7762169-0 (Version None)
Quarter: 2011Q3

REPORT INFORMATION
  Report Type: 
  Country: None (occurrence: None)
  Receive Date: 20110919
  Receipt Date: 20110919
  Transmission Date: 20111222
  Serious: Yes (Hospitalization)
  Sender: FDA-Public Use
  Company Number: None

PATIENT
  Sex: Male
  Weight: 70 kg

DRUGS (3)
  1. TAXOL [Suspect]
     Dosage: 400 MG
  2. BEVACIZUMAB (RHUMAB VEGF) [Suspect]
     Dosage: 1150 MG
  3. CARBOPLATIN [Suspect]
     Dosage: 650 MG

REACTIONS (2)
  - BLOOD SODIUM DECREASED [None]
  - SYNCOPE [None]
